FAERS Safety Report 12624366 (Version 1)
Quarter: 2016Q3

REPORT INFORMATION
  Report Type: Spontaneous
  Country: ES (occurrence: ES)
  Receive Date: 20160805
  Receipt Date: 20160805
  Transmission Date: 20161109
  Serious: Yes (Other)
  Sender: FDA-Public Use
  Company Number: ES-ABBVIE-16K-144-1691515-00

PATIENT
  Age: 47 Year
  Sex: Male

DRUGS (2)
  1. CEMIDON B6 [Concomitant]
     Active Substance: ISONIAZID\PYRIDOXINE HYDROCHLORIDE
     Indication: PRODUCT USED FOR UNKNOWN INDICATION
     Route: 048
     Dates: start: 20151120
  2. HUMIRA [Suspect]
     Active Substance: ADALIMUMAB
     Indication: PRODUCT USED FOR UNKNOWN INDICATION
     Route: 058
     Dates: start: 20160127

REACTIONS (2)
  - Hypertransaminasaemia [Recovered/Resolved]
  - Hepatocellular injury [Unknown]

NARRATIVE: CASE EVENT DATE: 2016
